FAERS Safety Report 15310718 (Version 1)
Quarter: 2018Q3

REPORT INFORMATION
  Report Type: Report from Study
  Country: US (occurrence: US)
  Receive Date: 20180823
  Receipt Date: 20180823
  Transmission Date: 20181010
  Serious: Yes (Other)
  Sender: FDA-Public Use
  Company Number: US-PFIZER INC-2018086045

PATIENT
  Age: 57 Year
  Sex: Female

DRUGS (2)
  1. SUTENT [Suspect]
     Active Substance: SUNITINIB MALATE
     Dosage: 37.5 MG, CYCLIC (DAILY; 28 DAYS ON AND 14 DAYS OFF)
     Route: 048
     Dates: start: 20180419, end: 20180724
  2. SUTENT [Suspect]
     Active Substance: SUNITINIB MALATE
     Indication: RENAL CELL CARCINOMA
     Dosage: 50 MG, DAILY
     Route: 048
     Dates: start: 20180225, end: 20180317

REACTIONS (16)
  - Post procedural haemorrhage [Unknown]
  - Hypertension [Unknown]
  - Paraesthesia [Unknown]
  - Toothache [Not Recovered/Not Resolved]
  - Drug dose omission [Unknown]
  - Diarrhoea [Recovered/Resolved]
  - Nausea [Unknown]
  - Pain in extremity [Unknown]
  - Skin discolouration [Unknown]
  - Furuncle [Recovering/Resolving]
  - Dyspepsia [Not Recovered/Not Resolved]
  - Upper respiratory fungal infection [Unknown]
  - Pruritus [Unknown]
  - Fungal oesophagitis [Unknown]
  - Varicose vein [Unknown]
  - Palmar-plantar erythrodysaesthesia syndrome [Unknown]

NARRATIVE: CASE EVENT DATE: 2018
